FAERS Safety Report 7406988-9 (Version None)
Quarter: 2011Q2

REPORT INFORMATION
  Report Type: 
  Country: None (occurrence: None)
  Receive Date: 20110411
  Receipt Date: 20110405
  Transmission Date: 20111010
  Serious: Yes (Hospitalization, Other)
  Sender: FDA-Public Use
  Company Number: US-PFIZER INC-2011075248

PATIENT
  Sex: Male
  Weight: 61.224 kg

DRUGS (1)
  1. CHANTIX [Suspect]
     Indication: SMOKING CESSATION THERAPY
     Dosage: 0.5 MG, 2X/DAY
     Dates: start: 20110303, end: 20110325

REACTIONS (5)
  - HALLUCINATION [None]
  - SUICIDAL IDEATION [None]
  - PARANOIA [None]
  - ABNORMAL DREAMS [None]
  - SUICIDE ATTEMPT [None]
